FAERS Safety Report 6716239-6 (Version None)
Quarter: 2010Q2

REPORT INFORMATION
  Report Type: 
  Country: None (occurrence: None)
  Receive Date: 20100507
  Receipt Date: 20100427
  Transmission Date: 20101027
  Serious: Yes (Hospitalization)
  Sender: FDA-Public Use
  Company Number: JP-BRISTOL-MYERS SQUIBB COMPANY-14961999

PATIENT
  Age: 66 Year
  Sex: Male

DRUGS (13)
  1. ERBITUX [Suspect]
     Indication: COLON CANCER
     Dosage: 460 MG:18MAR-26MAR09
     Route: 042
     Dates: start: 20090310, end: 20090326
  2. IRINOTECAN HYDROCHLORIDE [Concomitant]
     Indication: COLON CANCER
     Route: 042
     Dates: start: 20090326, end: 20090326
  3. FLUOROURACIL [Concomitant]
     Indication: COLON CANCER
     Dosage: 4400 MG IN IV DRIP
     Route: 040
     Dates: start: 20090326, end: 20090326
  4. LEUCOVORIN CALCIUM [Concomitant]
     Indication: COLON CANCER
     Route: 042
     Dates: start: 20090326, end: 20090326
  5. DECADRON [Concomitant]
     Indication: PREMEDICATION
     Dosage: 1.1429 MG
     Route: 042
     Dates: start: 20090310, end: 20090326
  6. KYTRIL [Concomitant]
     Indication: PREMEDICATION
     Route: 042
     Dates: start: 20090310, end: 20090326
  7. KYTRIL [Concomitant]
     Indication: ANTIEMETIC SUPPORTIVE CARE
     Route: 042
     Dates: start: 20090310, end: 20090326
  8. PENTASA [Concomitant]
     Indication: COLITIS ULCERATIVE
     Route: 048
  9. PREDONINE [Concomitant]
     Indication: COLITIS ULCERATIVE
     Dosage: 1DF-200-10 UNITS NOT MENTIONED
     Route: 048
  10. FASTIC [Concomitant]
     Indication: DIABETES MELLITUS
     Route: 048
  11. PARIET [Concomitant]
     Dosage: TABS
     Route: 048
  12. MOBIC [Concomitant]
     Dosage: TABS
     Route: 048
  13. CONIEL [Concomitant]
     Dosage: TABS
     Route: 048

REACTIONS (1)
  - COLITIS ULCERATIVE [None]
